FAERS Safety Report 6509190-8 (Version None)
Quarter: 2009Q4

REPORT INFORMATION
  Report Type: 
  Country: None (occurrence: None)
  Receive Date: 20091221
  Receipt Date: 20091207
  Transmission Date: 20100525
  Serious: Yes (Other)
  Sender: FDA-Public Use
  Company Number: IN-MYLANLABS-2009S1020969

PATIENT
  Age: 23 Year
  Sex: Male

DRUGS (5)
  1. HALOPERIDOL [Suspect]
     Indication: MANIA
     Route: 048
     Dates: start: 20040801
  2. HALOPERIDOL [Suspect]
     Route: 048
     Dates: start: 20040801
  3. HALOPERIDOL [Suspect]
     Route: 030
     Dates: start: 20040801
  4. VALPROIC ACID [Suspect]
     Indication: MANIA
     Dosage: TWO 200MG TABLETS THRICE DAILY.
     Route: 048
     Dates: start: 20040801
  5. TRIHEXYPHENIDYL HCL [Concomitant]
     Route: 048
     Dates: start: 20040801

REACTIONS (1)
  - NEUROLEPTIC MALIGNANT SYNDROME [None]
